FAERS Safety Report 5264486-5 (Version None)
Quarter: 2007Q1

REPORT INFORMATION
  Report Type: 
  Country: None (occurrence: None)
  Receive Date: 20070314
  Receipt Date: 20070305
  Transmission Date: 20070707
  Serious: Yes (Other)
  Sender: FDA-Public Use
  Company Number: CN-NOVOPROD-261354

PATIENT
  Age: 33 Year
  Sex: Male
  Weight: 84 kg

DRUGS (2)
  1. NOVOLOG MIX 70/30 [Suspect]
     Indication: DIABETES MELLITUS INSULIN-DEPENDENT
     Dosage: 46 IU, QD
     Route: 058
     Dates: start: 20050727, end: 20051026
  2. HERBAL PREPARATION [Concomitant]
     Dosage: 2 ML, QD
     Route: 042
     Dates: start: 20051014, end: 20051028

REACTIONS (4)
  - DRUG HYPERSENSITIVITY [None]
  - ERYTHEMA [None]
  - ERYTHEMA INDURATUM [None]
  - PRURITUS ALLERGIC [None]
